FAERS Safety Report 7913063-3 (Version None)
Quarter: 2011Q4

REPORT INFORMATION
  Report Type: 
  Country: None (occurrence: None)
  Receive Date: 20111114
  Receipt Date: 20111110
  Transmission Date: 20120403
  Serious: Yes (Hospitalization)
  Sender: FDA-Public Use
  Company Number: US-ABBOTT-11P-163-0871872-00

PATIENT
  Sex: Female
  Weight: 108.96 kg

DRUGS (2)
  1. HUMIRA [Suspect]
     Indication: OSTEOARTHRITIS
     Dates: start: 20111103
  2. HUMIRA [Suspect]
     Indication: RHEUMATOID ARTHRITIS
     Dates: start: 20070101, end: 20110901

REACTIONS (12)
  - VIRAL INFECTION [None]
  - ASTHMA [None]
  - UPPER RESPIRATORY TRACT INFECTION [None]
  - OEDEMA PERIPHERAL [None]
  - COUGH [None]
  - JOINT SWELLING [None]
  - DYSPNOEA [None]
  - ARTHRALGIA [None]
  - BRONCHOSPASM [None]
  - ARTHRITIS [None]
  - MUSCULOSKELETAL STIFFNESS [None]
  - PAIN IN EXTREMITY [None]
